FAERS Safety Report 11564729 (Version 1)
Quarter: 2015Q3

REPORT INFORMATION
  Report Type: Spontaneous
  Country: US (occurrence: US)
  Receive Date: 20150916
  Receipt Date: 20150916
  Transmission Date: 20151125
  Serious: No
  Sender: FDA-Public Use
  Company Number: US-ELI_LILLY_AND_COMPANY-US200903007503

PATIENT
  Sex: Female

DRUGS (1)
  1. FORTEO [Suspect]
     Active Substance: TERIPARATIDE
     Indication: OSTEOPOROSIS
     Dates: start: 200712, end: 20080523

REACTIONS (11)
  - Back pain [Unknown]
  - Myalgia [Unknown]
  - Dizziness [Unknown]
  - Cough [Recovered/Resolved]
  - Nausea [Recovering/Resolving]
  - Infection [Recovered/Resolved]
  - Productive cough [Recovered/Resolved]
  - Muscular weakness [Unknown]
  - Influenza [Recovered/Resolved]
  - Headache [Unknown]
  - Constipation [Not Recovered/Not Resolved]

NARRATIVE: CASE EVENT DATE: 2009
